FAERS Safety Report 5877935-6 (Version None)
Quarter: 2008Q3

REPORT INFORMATION
  Report Type: 
  Country: None (occurrence: None)
  Receive Date: 20080911
  Receipt Date: 20080902
  Transmission Date: 20090109
  Serious: Yes (Hospitalization)
  Sender: FDA-Public Use
  Company Number: B0534186A

PATIENT
  Age: 83 Year
  Sex: Female
  Weight: 63 kg

DRUGS (10)
  1. ARIXTRA [Suspect]
     Indication: PROPHYLAXIS
     Dosage: 2.5MG SINGLE DOSE
     Route: 058
     Dates: start: 20080708, end: 20080708
  2. CALCIPARINE [Suspect]
     Indication: COAGULOPATHY
     Route: 058
     Dates: start: 20080709, end: 20080710
  3. PREVISCAN [Suspect]
     Indication: ATRIAL FIBRILLATION
     Dosage: .75TAB SINGLE DOSE
     Route: 048
     Dates: start: 20080711, end: 20080711
  4. LOVENOX [Suspect]
     Indication: ATRIAL FIBRILLATION
     Dosage: .6ML TWICE PER DAY
     Route: 058
     Dates: start: 20080711, end: 20080718
  5. NEXIUM [Concomitant]
     Indication: DRUG USE FOR UNKNOWN INDICATION
     Dosage: 20MG PER DAY
     Route: 048
     Dates: start: 20080711
  6. ALDACTAZINE [Concomitant]
     Indication: HYPERTENSION
     Dosage: 1UNIT PER DAY
     Route: 048
     Dates: end: 20080709
  7. PYOSTACINE [Concomitant]
     Indication: ERYSIPELAS
     Dosage: 2UNIT TWICE PER DAY
     Route: 048
     Dates: start: 20080601, end: 20080709
  8. DOLIPRANE [Concomitant]
     Indication: PAIN
     Dosage: 500MG FIVE TIMES PER DAY
     Route: 048
  9. TARDYFERON [Concomitant]
     Indication: IRON DEFICIENCY
     Dosage: 80MG PER DAY
     Route: 048
     Dates: start: 20080709
  10. TANAKAN [Concomitant]
     Indication: DRUG USE FOR UNKNOWN INDICATION
     Dosage: 40MG THREE TIMES PER DAY
     Route: 048

REACTIONS (10)
  - ABASIA [None]
  - ANAEMIA [None]
  - DRUG INTERACTION [None]
  - HIATUS HERNIA [None]
  - MUSCLE HAEMORRHAGE [None]
  - MUSCULAR WEAKNESS [None]
  - OCCULT BLOOD POSITIVE [None]
  - PAIN IN EXTREMITY [None]
  - PLATELET COUNT INCREASED [None]
  - VOMITING [None]
